FAERS Safety Report 17909937 (Version 5)
Quarter: 2020Q4

REPORT INFORMATION
  Report Type: Spontaneous
  Country: JP (occurrence: JP)
  Receive Date: 20200617
  Receipt Date: 20201217
  Transmission Date: 20210113
  Serious: Yes (Death, Life-Threatening, Other)
  Sender: FDA-Public Use
  Company Number: JP-ELI_LILLY_AND_COMPANY-JP202006005840

PATIENT
  Age: 3 Month
  Sex: Male
  Weight: 3.94 kg

DRUGS (50)
  1. ADCIRCA [Suspect]
     Active Substance: TADALAFIL
     Dosage: 3.6 MG, DAILY
     Route: 048
     Dates: start: 20180807, end: 20181103
  2. REVATIO [Suspect]
     Active Substance: SILDENAFIL CITRATE
     Indication: PULMONARY ARTERIAL HYPERTENSION
     Dosage: 1.88 MG, EVERY 8 HRS
     Route: 048
     Dates: start: 20171124, end: 20171213
  3. REVATIO [Suspect]
     Active Substance: SILDENAFIL CITRATE
     Dosage: 0.67 MG, EVERY 8 HRS
     Route: 048
     Dates: start: 20180106, end: 20180207
  4. REVATIO [Suspect]
     Active Substance: SILDENAFIL CITRATE
     Dosage: 2 MG, EVERY 8 HRS
     Route: 048
     Dates: start: 20180215, end: 20180225
  5. FLOLAN [Suspect]
     Active Substance: EPOPROSTENOL SODIUM
     Indication: PULMONARY ARTERIAL HYPERTENSION
     Dosage: UNK, UNKNOWN
     Route: 041
     Dates: start: 20171027
  6. SPIRONOLACTONE. [Concomitant]
     Active Substance: SPIRONOLACTONE
     Dosage: UNK, UNKNOWN
     Route: 065
  7. DOBUTAMINE [Concomitant]
     Active Substance: DOBUTAMINE HYDROCHLORIDE
     Dosage: UNK, UNKNOWN
     Route: 065
  8. NITRIC OXIDE. [Concomitant]
     Active Substance: NITRIC OXIDE
     Dosage: UNK, UNKNOWN
     Route: 065
     Dates: start: 20171216, end: 20180109
  9. NITRIC OXIDE. [Concomitant]
     Active Substance: NITRIC OXIDE
     Dosage: UNK, UNKNOWN
     Route: 065
     Dates: start: 20180515, end: 20180521
  10. ALBUMIN (HUMAN) [Concomitant]
     Active Substance: ALBUMIN HUMAN
     Indication: PRODUCT USED FOR UNKNOWN INDICATION
  11. XYZAL [Concomitant]
     Active Substance: LEVOCETIRIZINE DIHYDROCHLORIDE
     Indication: PRODUCT USED FOR UNKNOWN INDICATION
  12. FLUITRAN [Concomitant]
     Active Substance: TRICHLORMETHIAZIDE
     Indication: PRODUCT USED FOR UNKNOWN INDICATION
  13. ADCIRCA [Suspect]
     Active Substance: TADALAFIL
     Dosage: 3.6 MG, DAILY
     Route: 048
     Dates: start: 20181106, end: 20181111
  14. DEXAMETHASONE. [Concomitant]
     Active Substance: DEXAMETHASONE
     Indication: PRODUCT USED FOR UNKNOWN INDICATION
  15. MIYA-BM [Concomitant]
     Active Substance: CLOSTRIDIUM BUTYRICUM SPORES STRAIN M-55
     Indication: PRODUCT USED FOR UNKNOWN INDICATION
  16. FUROSEMIDE. [Concomitant]
     Active Substance: FUROSEMIDE
     Indication: PRODUCT USED FOR UNKNOWN INDICATION
     Dosage: 1 MG/KG, UNKNOWN
     Route: 065
  17. SULBACILLIN [Concomitant]
     Active Substance: AMPICILLIN SODIUM\SULBACTAM SODIUM
     Indication: PRODUCT USED FOR UNKNOWN INDICATION
  18. SODIUM CHLORIDE. [Concomitant]
     Active Substance: SODIUM CHLORIDE
     Indication: PRODUCT USED FOR UNKNOWN INDICATION
  19. REVATIO [Suspect]
     Active Substance: SILDENAFIL CITRATE
     Dosage: 1.33 MG, EVERY 8 HRS
     Route: 048
     Dates: start: 20180208, end: 20180214
  20. VOLIBRIS [Suspect]
     Active Substance: AMBRISENTAN
     Dosage: 0.4 MG, DAILY
     Route: 048
     Dates: start: 20180828, end: 20180830
  21. FLOLAN [Suspect]
     Active Substance: EPOPROSTENOL SODIUM
     Dosage: UNK, UNKNOWN
     Route: 041
  22. FUROSEMIDE. [Concomitant]
     Active Substance: FUROSEMIDE
     Dosage: UNK, UNKNOWN
     Route: 065
  23. DOPAMINE [Concomitant]
     Active Substance: DOPAMINE HYDROCHLORIDE
     Indication: PRODUCT USED FOR UNKNOWN INDICATION
     Dosage: UNK, UNKNOWN
     Route: 065
  24. DOBUTAMINE [Concomitant]
     Active Substance: DOBUTAMINE HYDROCHLORIDE
     Indication: PRODUCT USED FOR UNKNOWN INDICATION
     Dosage: UNK, UNKNOWN
     Route: 065
  25. NITRIC OXIDE. [Concomitant]
     Active Substance: NITRIC OXIDE
     Indication: PRODUCT USED FOR UNKNOWN INDICATION
     Dosage: UNK, UNKNOWN
     Route: 065
     Dates: start: 20171027, end: 20171127
  26. REVATIO [Suspect]
     Active Substance: SILDENAFIL CITRATE
     Dosage: 2.67 MG, EVERY 8 HRS
     Route: 048
     Dates: start: 20180226, end: 20180304
  27. FLOLAN [Suspect]
     Active Substance: EPOPROSTENOL SODIUM
     Dosage: UNK, UNKNOWN
     Route: 041
  28. FLOLAN [Suspect]
     Active Substance: EPOPROSTENOL SODIUM
     Dosage: UNK, UNKNOWN
     Route: 041
     Dates: end: 20181111
  29. OLPRINONE [Concomitant]
     Active Substance: OLPRINONE HYDROCHLORIDE
     Indication: PRODUCT USED FOR UNKNOWN INDICATION
     Dosage: UNK, UNKNOWN
     Route: 065
  30. OLPRINONE [Concomitant]
     Active Substance: OLPRINONE HYDROCHLORIDE
     Dosage: UNK, UNKNOWN
     Route: 065
  31. NITRIC OXIDE. [Concomitant]
     Active Substance: NITRIC OXIDE
     Dosage: UNK, UNKNOWN
     Route: 065
     Dates: start: 20181011, end: 20181111
  32. EFFORTIL [Concomitant]
     Active Substance: ETILEFRINE HYDROCHLORIDE
     Indication: PRODUCT USED FOR UNKNOWN INDICATION
  33. URSODEOXYCHOLIC ACID [Concomitant]
     Active Substance: URSODIOL
     Indication: PRODUCT USED FOR UNKNOWN INDICATION
  34. ADCIRCA [Suspect]
     Active Substance: TADALAFIL
     Dosage: 1.8 MG, DAILY
     Route: 048
     Dates: start: 20180731, end: 20180806
  35. VOLIBRIS [Suspect]
     Active Substance: AMBRISENTAN
     Indication: PULMONARY ARTERIAL HYPERTENSION
     Dosage: 0.4 MG, DAILY
     Route: 048
     Dates: start: 20171213, end: 20171215
  36. DOBUTAMINE [Concomitant]
     Active Substance: DOBUTAMINE HYDROCHLORIDE
     Dosage: UNK, UNKNOWN
     Route: 065
  37. DOBUTAMINE [Concomitant]
     Active Substance: DOBUTAMINE HYDROCHLORIDE
     Dosage: UNK, UNKNOWN
     Route: 065
  38. DOBUTAMINE [Concomitant]
     Active Substance: DOBUTAMINE HYDROCHLORIDE
     Dosage: UNK, UNKNOWN
     Route: 065
  39. NITRIC OXIDE. [Concomitant]
     Active Substance: NITRIC OXIDE
     Dosage: UNK, UNKNOWN
     Route: 065
     Dates: start: 20180224, end: 20180302
  40. THYRADIN [Concomitant]
     Active Substance: LEVOTHYROXINE
     Indication: PRODUCT USED FOR UNKNOWN INDICATION
  41. SPIRONOLACTONE. [Concomitant]
     Active Substance: SPIRONOLACTONE
     Indication: PRODUCT USED FOR UNKNOWN INDICATION
     Dosage: 1 MG/KG, UNKNOWN
     Route: 065
  42. DOPAMINE [Concomitant]
     Active Substance: DOPAMINE HYDROCHLORIDE
     Dosage: UNK, UNKNOWN
     Route: 065
  43. FAMOTIDINE. [Concomitant]
     Active Substance: FAMOTIDINE
     Indication: PRODUCT USED FOR UNKNOWN INDICATION
  44. ASPARA POTASSIUM [Concomitant]
     Active Substance: POTASSIUM ASPARTATE
     Indication: PRODUCT USED FOR UNKNOWN INDICATION
  45. ADCIRCA [Suspect]
     Active Substance: TADALAFIL
     Indication: PULMONARY ARTERIAL HYPERTENSION
     Dosage: 4 MG, DAILY
     Route: 048
     Dates: start: 20171213, end: 20171217
  46. REVATIO [Suspect]
     Active Substance: SILDENAFIL CITRATE
     Dosage: 3.33 MG, EVERY 8 HRS
     Route: 048
     Dates: start: 20180305, end: 20180731
  47. DOPAMINE [Concomitant]
     Active Substance: DOPAMINE HYDROCHLORIDE
     Dosage: UNK, UNKNOWN
     Route: 065
  48. DOPAMINE [Concomitant]
     Active Substance: DOPAMINE HYDROCHLORIDE
     Dosage: UNK, UNKNOWN
     Route: 065
  49. E KEPPRA [Concomitant]
     Active Substance: LEVETIRACETAM
     Indication: PRODUCT USED FOR UNKNOWN INDICATION
     Dosage: UNK, UNKNOWN
     Route: 065
     Dates: start: 20180910, end: 20181110
  50. FENTANYL. [Concomitant]
     Active Substance: FENTANYL
     Indication: PRODUCT USED FOR UNKNOWN INDICATION

REACTIONS (17)
  - Pulmonary oedema [Fatal]
  - Pulmonary arterial hypertension [Fatal]
  - Pulmonary oedema [Recovering/Resolving]
  - Pulmonary congestion [Fatal]
  - Pulmonary oedema [Recovering/Resolving]
  - Pulmonary congestion [Recovering/Resolving]
  - Oliguria [Fatal]
  - Oedema [Recovering/Resolving]
  - Oedema [Recovering/Resolving]
  - Oedema [Recovering/Resolving]
  - Oedema [Fatal]
  - Pulmonary oedema [Recovering/Resolving]
  - Oedema [Recovering/Resolving]
  - Oedema [Recovering/Resolving]
  - Pulmonary oedema [Recovering/Resolving]
  - Blood pressure decreased [Fatal]
  - Pulmonary congestion [Recovering/Resolving]

NARRATIVE: CASE EVENT DATE: 20171213
